FAERS Safety Report 16284220 (Version 2)
Quarter: 2019Q2

REPORT INFORMATION
  Report Type: Spontaneous
  Country: US (occurrence: US)
  Receive Date: 20190507
  Receipt Date: 20190521
  Transmission Date: 20190711
  Serious: Yes (Hospitalization, Other)
  Sender: FDA-Public Use
  Company Number: US-DRREDDYS-USA/USA/19/0110048

PATIENT
  Age: 70 Year
  Sex: Male
  Weight: 80 kg

DRUGS (16)
  1. SUCCINYLCHOLINE [Concomitant]
     Active Substance: SUCCINYLCHOLINE
     Indication: INDUCTION OF ANAESTHESIA
  2. PROPOFOL INJECTABLE EMULSION [Suspect]
     Active Substance: PROPOFOL
     Indication: INDUCTION OF ANAESTHESIA
     Dosage: TITRATED TO 100 TO 160 MICROG/KG/MIN
  3. TRANEXAMIC ACID. [Concomitant]
     Active Substance: TRANEXAMIC ACID
     Dosage: BOLUS AND INFUSION FOR A TOTAL DOSE OF 1,520 MG
  4. REMIFENTANIL [Concomitant]
     Active Substance: REMIFENTANIL
     Indication: PRODUCT USED FOR UNKNOWN INDICATION
     Dosage: 0.1 TO 0.2 MICRO GRAM/KG/MIN
  5. MIDAZOLAM [Concomitant]
     Active Substance: MIDAZOLAM HYDROCHLORIDE
     Indication: PRODUCT USED FOR UNKNOWN INDICATION
     Dosage: IN INCREMENTAL DOSES
  6. PROPOFOL INJECTABLE EMULSION [Suspect]
     Active Substance: PROPOFOL
  7. LIDOCAINE. [Concomitant]
     Active Substance: LIDOCAINE
     Indication: INDUCTION OF ANAESTHESIA
  8. FENTANYL. [Concomitant]
     Active Substance: FENTANYL
     Indication: INDUCTION OF ANAESTHESIA
  9. KETAMINE [Concomitant]
     Active Substance: KETAMINE
     Indication: PRODUCT USED FOR UNKNOWN INDICATION
     Dosage: IN INCREMENTAL DOSES
  10. CEFAZOLIN [Concomitant]
     Active Substance: CEFAZOLIN
     Indication: PRODUCT USED FOR UNKNOWN INDICATION
  11. SEVOFLURANE. [Concomitant]
     Active Substance: SEVOFLURANE
     Dosage: 0.6 PERCENT TO 0.7 PERCENT EXHALED CONCENTRATIONS
  12. PROPOFOL INJECTABLE EMULSION [Suspect]
     Active Substance: PROPOFOL
     Dosage: TITRATED TO 100 TO 160  MICROG/KG/MIN
  13. DEXAMETHASONE. [Concomitant]
     Active Substance: DEXAMETHASONE
     Indication: PRODUCT USED FOR UNKNOWN INDICATION
  14. VANCOMYCIN [Concomitant]
     Active Substance: VANCOMYCIN
     Indication: PRODUCT USED FOR UNKNOWN INDICATION
  15. TRANEXAMIC ACID. [Concomitant]
     Active Substance: TRANEXAMIC ACID
     Indication: PRODUCT USED FOR UNKNOWN INDICATION
     Dosage: BOLUS AND INFUSION FOR A TOTAL DOSE OF 1,520 MG
  16. SEVOFLURANE. [Concomitant]
     Active Substance: SEVOFLURANE
     Indication: MAINTENANCE OF ANAESTHESIA
     Dosage: AT EXHALED CONCENTRATIONS OF 1.2 PERCENT TO 1.4 PERCENT, WHICH WERE BRIEFLY INCREASED TO 2.8 PERCENT

REACTIONS (5)
  - Delayed recovery from anaesthesia [Recovered/Resolved]
  - Optic ischaemic neuropathy [Recovering/Resolving]
  - Blindness [Recovering/Resolving]
  - Mean arterial pressure decreased [Recovered/Resolved]
  - Metabolic acidosis [Unknown]
